FAERS Safety Report 10271878 (Version 1)
Quarter: 2014Q3

REPORT INFORMATION
  Report Type: Spontaneous
  Country: GB (occurrence: GB)
  Receive Date: 20140702
  Receipt Date: 20140702
  Transmission Date: 20150326
  Serious: Yes (Other)
  Sender: FDA-Public Use
  Company Number: PHHY2014GB077372

PATIENT
  Age: 75 Year
  Sex: Female

DRUGS (1)
  1. MOMETASONE FUROATE. [Suspect]
     Active Substance: MOMETASONE FUROATE
     Route: 045

REACTIONS (3)
  - Arthralgia [Unknown]
  - Myalgia [Unknown]
  - Insomnia [Unknown]
